FAERS Safety Report 16057380 (Version 10)
Quarter: 2020Q4

REPORT INFORMATION
  Report Type: Spontaneous
  Country: US (occurrence: US)
  Receive Date: 20190311
  Receipt Date: 20201130
  Transmission Date: 20210113
  Serious: No
  Sender: FDA-Public Use
  Company Number: US-PFIZER INC-2019099205

PATIENT
  Age: 44 Year
  Sex: Male

DRUGS (1)
  1. CELEBREX [Suspect]
     Active Substance: CELECOXIB
     Indication: ARTHRALGIA
     Dosage: 200 MG, 1X/DAY
     Route: 048

REACTIONS (6)
  - Oedema peripheral [Recovering/Resolving]
  - Therapeutic response unexpected [Unknown]
  - Malaise [Unknown]
  - Burnout syndrome [Unknown]
  - Sinusitis [Unknown]
  - Blood pressure decreased [Unknown]
